FAERS Safety Report 18456970 (Version 1)
Quarter: 2020Q4

REPORT INFORMATION
  Report Type: Spontaneous
  Country: US (occurrence: US)
  Receive Date: 20201102
  Receipt Date: 20201102
  Transmission Date: 20210114
  Serious: Yes (Death)
  Sender: FDA-Public Use
  Company Number: None

PATIENT
  Age: 79 Year
  Sex: Female

DRUGS (1)
  1. YESCARTA [Suspect]
     Active Substance: AXICABTAGENE CILOLEUCEL
     Indication: DIFFUSE LARGE B-CELL LYMPHOMA
     Dosage: ?          OTHER FREQUENCY:ONCE;?
     Route: 042
     Dates: start: 20200914, end: 20200914

REACTIONS (12)
  - Cardiac arrest [None]
  - Lymphocyte adoptive therapy [None]
  - Loss of consciousness [None]
  - Atrial fibrillation [None]
  - Neurotoxicity [None]
  - Escherichia bacteraemia [None]
  - Blood culture positive [None]
  - Cytokine release syndrome [None]
  - Septic shock [None]
  - Ventricular tachycardia [None]
  - Ventricular fibrillation [None]
  - Pulseless electrical activity [None]

NARRATIVE: CASE EVENT DATE: 20201027
